FAERS Safety Report 19171746 (Version 5)
Quarter: 2021Q2

REPORT INFORMATION
  Report Type: Report from Study
  Country: CA (occurrence: CA)
  Receive Date: 20210423
  Receipt Date: 20210518
  Transmission Date: 20210717
  Serious: No
  Sender: FDA-Public Use
  Company Number: CA-BEH-2021130651

PATIENT
  Age: 52 Year
  Sex: Male
  Weight: 82.2 kg

DRUGS (5)
  1. HIZENTRA [Suspect]
     Active Substance: HUMAN IMMUNOGLOBULIN G
     Indication: PRIMARY IMMUNODEFICIENCY SYNDROME
     Dosage: 8 GRAM, QW
     Route: 058
     Dates: start: 20210412
  2. HIZENTRA [Suspect]
     Active Substance: HUMAN IMMUNOGLOBULIN G
     Dosage: UNK
     Route: 058
  3. HIZENTRA [Suspect]
     Active Substance: HUMAN IMMUNOGLOBULIN G
     Dosage: UNK
     Route: 058
  4. NUCALA [Concomitant]
     Active Substance: MEPOLIZUMAB
  5. HIZENTRA [Suspect]
     Active Substance: HUMAN IMMUNOGLOBULIN G
     Dosage: 8 GRAM, TOT
     Route: 058
     Dates: start: 20210423, end: 20210423

REACTIONS (22)
  - Infusion site erythema [Recovered/Resolved]
  - Fatigue [Unknown]
  - Headache [Unknown]
  - Injection site mass [Unknown]
  - Injection site reaction [Unknown]
  - Nausea [Recovered/Resolved]
  - Infusion site mass [Recovered/Resolved]
  - Inflammation [Recovered/Resolved]
  - Headache [Recovered/Resolved]
  - Injection site erythema [Unknown]
  - Headache [Recovering/Resolving]
  - Hypoaesthesia [Recovered/Resolved]
  - Dyspnoea [Recovered/Resolved]
  - Stress [Recovered/Resolved]
  - Fatigue [Recovering/Resolving]
  - Infusion site pain [Recovered/Resolved]
  - Back pain [Recovered/Resolved]
  - Injection site mass [Unknown]
  - Insomnia [Recovered/Resolved]
  - Injection site induration [Recovered/Resolved]
  - Headache [Unknown]
  - Injection site pain [Unknown]

NARRATIVE: CASE EVENT DATE: 202104
